FAERS Safety Report 21274321 (Version 1)
Quarter: 2022Q3

REPORT INFORMATION
  Report Type: Report from Study
  Country: UY (occurrence: UY)
  Receive Date: 20220831
  Receipt Date: 20220831
  Transmission Date: 20221027
  Serious: Yes (Hospitalization)
  Sender: FDA-Public Use
  Company Number: UY-ABBVIE-22K-168-4522058-00

PATIENT
  Sex: Male

DRUGS (1)
  1. VENCLEXTA [Suspect]
     Active Substance: VENETOCLAX
     Indication: Chronic lymphocytic leukaemia
     Route: 048
     Dates: start: 20220622

REACTIONS (3)
  - Calculus urethral [Not Recovered/Not Resolved]
  - Nephrolithiasis [Unknown]
  - Pain [Unknown]

NARRATIVE: CASE EVENT DATE: 20220101
